FAERS Safety Report 4680361-9 (Version None)
Quarter: 2005Q2

REPORT INFORMATION
  Report Type: 
  Country: None (occurrence: None)
  Receive Date: 20050601
  Receipt Date: 20050518
  Transmission Date: 20051028
  Serious: Yes (Hospitalization)
  Sender: FDA-Public Use
  Company Number: DSA_25388_2004

PATIENT
  Age: 83 Year
  Sex: Female

DRUGS (6)
  1. MONO-TILDIEM [Suspect]
     Indication: HYPERTENSION
     Dosage: 200 MG Q DAY PO
     Route: 048
     Dates: end: 20030817
  2. ASPEGIC 325 [Suspect]
     Dosage: 250 MG Q DAY PO
     Route: 048
     Dates: start: 20030811, end: 20030817
  3. TAMOXIFEN CITRATE [Suspect]
     Indication: BREAST CANCER
     Dosage: 20 MG Q DAY PO
     Route: 048
     Dates: start: 19980615, end: 20030817
  4. OMEPRAZOLE [Suspect]
     Dosage: 20 MG Q DAY PO
     Route: 048
     Dates: start: 20030811, end: 20030817
  5. GARDENAL [Concomitant]
  6. AUGMENTIN '125' [Concomitant]

REACTIONS (7)
  - ALANINE AMINOTRANSFERASE INCREASED [None]
  - ASPARTATE AMINOTRANSFERASE INCREASED [None]
  - CEREBRAL DISORDER [None]
  - CONFUSIONAL STATE [None]
  - DYSPHAGIA [None]
  - EPILEPSY [None]
  - GAMMA-GLUTAMYLTRANSFERASE INCREASED [None]
